FAERS Safety Report 20499944 (Version 1)
Quarter: 2022Q1

REPORT INFORMATION
  Report Type: Spontaneous
  Country: US (occurrence: US)
  Receive Date: 20220222
  Receipt Date: 20220222
  Transmission Date: 20220423
  Serious: No
  Sender: FDA-Public Use
  Company Number: US-UCBSA-2021036038

PATIENT
  Age: 75 Year
  Sex: Male

DRUGS (15)
  1. LEVETIRACETAM [Suspect]
     Active Substance: LEVETIRACETAM
     Indication: Focal dyscognitive seizures
     Dosage: UNK
  2. LEVETIRACETAM [Suspect]
     Active Substance: LEVETIRACETAM
     Indication: Electroencephalogram abnormal
  3. LACOSAMIDE [Concomitant]
     Active Substance: LACOSAMIDE
     Indication: Focal dyscognitive seizures
     Dosage: UNK
  4. CLOBAZAM [Concomitant]
     Active Substance: CLOBAZAM
     Indication: Focal dyscognitive seizures
     Dosage: UNK
  5. CLOBAZAM [Concomitant]
     Active Substance: CLOBAZAM
     Indication: Electroencephalogram abnormal
  6. VALPROATE SODIUM [Concomitant]
     Active Substance: VALPROATE SODIUM
     Indication: Focal dyscognitive seizures
     Dosage: UNK
  7. VALPROATE SODIUM [Concomitant]
     Active Substance: VALPROATE SODIUM
     Indication: Electroencephalogram abnormal
  8. PHENYTOIN [Concomitant]
     Active Substance: PHENYTOIN
     Indication: Focal dyscognitive seizures
     Dosage: UNK
  9. PHENYTOIN [Concomitant]
     Active Substance: PHENYTOIN
     Indication: Electroencephalogram abnormal
  10. OXCARBAZEPINE [Concomitant]
     Active Substance: OXCARBAZEPINE
     Indication: Focal dyscognitive seizures
     Dosage: UNK
  11. OXCARBAZEPINE [Concomitant]
     Active Substance: OXCARBAZEPINE
     Indication: Electroencephalogram abnormal
  12. TOPIRAMATE [Concomitant]
     Active Substance: TOPIRAMATE
     Indication: Focal dyscognitive seizures
     Dosage: UNK
  13. TOPIRAMATE [Concomitant]
     Active Substance: TOPIRAMATE
     Indication: Electroencephalogram abnormal
  14. PHENOBARBITAL [Concomitant]
     Active Substance: PHENOBARBITAL
     Indication: Focal dyscognitive seizures
     Dosage: UNK
  15. PHENOBARBITAL [Concomitant]
     Active Substance: PHENOBARBITAL
     Indication: Electroencephalogram abnormal

REACTIONS (2)
  - Drug ineffective for unapproved indication [Unknown]
  - Product use in unapproved indication [Unknown]
